FAERS Safety Report 5062178-9 (Version None)
Quarter: 2006Q3

REPORT INFORMATION
  Report Type: 
  Country: None (occurrence: None)
  Receive Date: 20060726
  Receipt Date: 20060109
  Transmission Date: 20061208
  Serious: Yes (Hospitalization)
  Sender: FDA-Public Use
  Company Number: PL-ROCHE-431665

PATIENT
  Age: 20 Year
  Sex: Male
  Weight: 70 kg

DRUGS (4)
  1. ACCUTANE [Suspect]
     Route: 048
     Dates: start: 20051115, end: 20051215
  2. ACCUTANE [Suspect]
     Route: 048
     Dates: start: 20051215, end: 20051219
  3. DALACIN C [Concomitant]
     Indication: ACNE
     Dosage: BETWEEN THE 19 DECEMBER 2005 AND 22 DECEMBER 2005 THE TDD WAS 1800MG. FROM THIS DATE ONWARDS THE D+
     Route: 048
     Dates: start: 20051219
  4. NOLICIN [Concomitant]
     Indication: URINARY TRACT INFECTION
     Route: 048
     Dates: start: 20051215, end: 20051222

REACTIONS (19)
  - ABDOMINAL PAIN [None]
  - ASTHENIA [None]
  - CHEST PAIN [None]
  - CONSTIPATION [None]
  - FATIGUE [None]
  - GASTROENTERITIS VIRAL [None]
  - GRANULOCYTE COUNT INCREASED [None]
  - INSOMNIA [None]
  - LYMPHADENOPATHY [None]
  - MALAISE [None]
  - MOVEMENT DISORDER [None]
  - OESOPHAGITIS [None]
  - PLATELET COUNT INCREASED [None]
  - PYREXIA [None]
  - RENAL COLIC [None]
  - SKIN DISORDER [None]
  - URINARY TRACT INFECTION [None]
  - WEIGHT DECREASED [None]
  - WHITE BLOOD CELL COUNT INCREASED [None]
